FAERS Safety Report 16865814 (Version 1)
Quarter: 2019Q3

REPORT INFORMATION
  Report Type: Spontaneous
  Country: US (occurrence: US)
  Receive Date: 20190930
  Receipt Date: 20190930
  Transmission Date: 20191005
  Serious: No
  Sender: FDA-Public Use
  Company Number: US-ALLERGAN-1845591US

PATIENT

DRUGS (3)
  1. VRAYLAR [Suspect]
     Active Substance: CARIPRAZINE
     Indication: INSOMNIA
     Dosage: 1.5 MG, UNK
     Route: 065
     Dates: start: 2018
  2. ANTIDEPRESSANTS [Concomitant]
     Active Substance: UNSPECIFIED INGREDIENT
  3. VRAYLAR [Suspect]
     Active Substance: CARIPRAZINE
     Indication: MOOD SWINGS

REACTIONS (3)
  - Adverse event [Unknown]
  - Akathisia [Not Recovered/Not Resolved]
  - Schizophreniform disorder [Unknown]
